FAERS Safety Report 9192202 (Version 3)
Quarter: 2013Q2

REPORT INFORMATION
  Report Type: Spontaneous
  Country: JP (occurrence: None)
  Receive Date: 20130325
  Receipt Date: 20130417
  Transmission Date: 20140414
  Serious: Yes (Death, Hospitalization, Disabling)
  Sender: FDA-Public Use
  Company Number: 2013S1000785

PATIENT
  Age: 57 Year
  Sex: Female

DRUGS (10)
  1. LASIX [Concomitant]
  2. PREDNISOLONE [Concomitant]
  3. HALCION [Concomitant]
  4. URSO [Concomitant]
  5. AMARYL [Concomitant]
  6. GLUCONSAN K [Concomitant]
  7. GASTROM [Concomitant]
  8. LIVALO (PITAVASTATIN) TABLETS 2 MG [Suspect]
     Indication: BLOOD CHOLESTEROL INCREASED
     Route: 048
     Dates: start: 20121121, end: 20121218
  9. TAKEPRON [Concomitant]
  10. ZYLORIC [Concomitant]

REACTIONS (4)
  - Ascites [None]
  - Hepatic failure [None]
  - Multi-organ failure [None]
  - Rhabdomyolysis [None]
